FAERS Safety Report 9578055 (Version 1)
Quarter: 2013Q4

REPORT INFORMATION
  Report Type: Spontaneous
  Country: US (occurrence: US)
  Receive Date: 20131001
  Receipt Date: 20131001
  Transmission Date: 20140711
  Serious: Yes (Hospitalization)
  Sender: FDA-Public Use
  Company Number: US-AMGEN-USASP2013012196

PATIENT
  Age: 65 Year
  Sex: Female

DRUGS (1)
  1. ENBREL [Suspect]
     Indication: RHEUMATOID ARTHRITIS
     Dosage: 50 MG, QWK
     Route: 058
     Dates: start: 20080519

REACTIONS (6)
  - Atypical pneumonia [Recovered/Resolved]
  - Fall [Unknown]
  - Blepharospasm [Unknown]
  - Lacrimation increased [Unknown]
  - Neck injury [Unknown]
  - Chest pain [Unknown]
